FAERS Safety Report 5080721-0 (Version None)
Quarter: 2006Q3

REPORT INFORMATION
  Report Type: 
  Country: None (occurrence: None)
  Receive Date: 20060815
  Receipt Date: 20060810
  Transmission Date: 20061208
  Serious: Yes (Hospitalization)
  Sender: FDA-Public Use
  Company Number: US-MERCK-0608USA02599

PATIENT
  Age: 77 Year
  Sex: Female

DRUGS (12)
  1. VYTORIN [Suspect]
     Indication: BLOOD CHOLESTEROL INCREASED
     Route: 048
     Dates: start: 20060101, end: 20060701
  2. ARANESP [Concomitant]
     Route: 065
  3. FERROUS SULFATE [Concomitant]
     Route: 048
  4. ROCALTROL [Concomitant]
     Route: 048
  5. LASIX [Concomitant]
     Route: 048
  6. ZAROXOLYN [Concomitant]
     Route: 048
  7. TOPROL-XL [Concomitant]
     Route: 048
  8. MICARDIS [Concomitant]
     Route: 048
  9. IMDUR [Concomitant]
     Route: 048
  10. GLIPIZIDE [Concomitant]
     Route: 048
  11. ASPIRIN [Concomitant]
     Route: 065
  12. PLAVIX [Concomitant]
     Route: 065

REACTIONS (5)
  - ASTHENIA [None]
  - BLOOD GLUCOSE DECREASED [None]
  - CONDITION AGGRAVATED [None]
  - FATIGUE [None]
  - RENAL FAILURE [None]
